FAERS Safety Report 22253449 (Version 3)
Quarter: 2023Q2

REPORT INFORMATION
  Report Type: Spontaneous
  Country: US (occurrence: US)
  Receive Date: 20230426
  Receipt Date: 20230524
  Transmission Date: 20230721
  Serious: Yes (Hospitalization, Other)
  Sender: FDA-Public Use
  Company Number: US-AMGEN-USASP2023068372

PATIENT
  Age: 65 Year
  Sex: Female

DRUGS (2)
  1. TAVNEOS [Suspect]
     Active Substance: AVACOPAN
     Indication: Granulomatosis with polyangiitis
     Dosage: 30 MILLIGRAM, BID (TAKE 3 CAPSULES (30 MG) BY MOUTH TWICE DAILY WITH FOOD)
     Route: 048
     Dates: start: 20230330
  2. RITUXAN [Concomitant]
     Active Substance: RITUXIMAB

REACTIONS (7)
  - Swelling face [Unknown]
  - Peripheral swelling [Unknown]
  - Muscular weakness [Unknown]
  - Fall [Unknown]
  - Pharyngeal swelling [Unknown]
  - Blood glucose increased [Unknown]
  - Hypersensitivity [Unknown]

NARRATIVE: CASE EVENT DATE: 20230101
